FAERS Safety Report 14987203 (Version 3)
Quarter: 2018Q2

REPORT INFORMATION
  Report Type: Spontaneous
  Country: DE (occurrence: DE)
  Receive Date: 20180608
  Receipt Date: 20180629
  Transmission Date: 20180711
  Serious: Yes (Other)
  Sender: FDA-Public Use
  Company Number: DE-ASTELLAS-2018US020574

PATIENT
  Sex: Male

DRUGS (1)
  1. XTANDI [Suspect]
     Active Substance: ENZALUTAMIDE
     Indication: PRODUCT USED FOR UNKNOWN INDICATION
     Route: 048

REACTIONS (5)
  - Wrong technique in product usage process [Unknown]
  - Drug ineffective [Unknown]
  - Dysphagia [Unknown]
  - Intentional product misuse [Unknown]
  - Product size issue [Unknown]

NARRATIVE: CASE EVENT DATE: 201804
